FAERS Safety Report 12246313 (Version 1)
Quarter: 2016Q2

REPORT INFORMATION
  Report Type: Spontaneous
  Country: US (occurrence: US)
  Receive Date: 20160407
  Receipt Date: 20160407
  Transmission Date: 20160815
  Serious: No
  Sender: FDA-Public Use
  Company Number: US-HERITAGE PHARMACEUTICALS-2016HTG00083

PATIENT
  Age: 70 Year
  Sex: Male
  Weight: 81.63 kg

DRUGS (4)
  1. CALCIUM [Concomitant]
     Active Substance: CALCIUM
  2. DIFLUNISAL. [Suspect]
     Active Substance: DIFLUNISAL
     Dosage: 500 MG, ONCE
     Route: 048
     Dates: start: 20150409, end: 20150409
  3. GLUCOSAMINE AND CHONDROITIN [Concomitant]
     Active Substance: CHONDROITIN SULFATE (BOVINE)\GLUCOSAMINE HYDROCHLORIDE
  4. DIFLUNISAL. [Suspect]
     Active Substance: DIFLUNISAL
     Indication: ARTHRALGIA
     Dosage: 500 MG, 3X/DAY
     Route: 048
     Dates: start: 20150311, end: 20150404

REACTIONS (9)
  - Negative thoughts [Recovered/Resolved]
  - Mood altered [Recovering/Resolving]
  - Product substitution issue [Unknown]
  - Fatigue [Recovering/Resolving]
  - Drug ineffective [Recovering/Resolving]
  - Disorientation [Recovering/Resolving]
  - Feeling abnormal [Recovering/Resolving]
  - Somnolence [Recovering/Resolving]
  - Libido decreased [Not Recovered/Not Resolved]

NARRATIVE: CASE EVENT DATE: 2015
